FAERS Safety Report 10464837 (Version 1)
Quarter: 2014Q3

REPORT INFORMATION
  Report Type: Report from Study
  Country: CA (occurrence: CA)
  Receive Date: 20140919
  Receipt Date: 20140919
  Transmission Date: 20150326
  Serious: Yes (Other)
  Sender: FDA-Public Use
  Company Number: CA-BRISTOL-MYERS SQUIBB COMPANY-21389127

PATIENT
  Age: 68 Year
  Sex: Female

DRUGS (11)
  1. ORENCIA [Suspect]
     Active Substance: ABATACEPT
     Indication: RHEUMATOID ARTHRITIS
     Route: 042
     Dates: start: 20091102
  2. METFORMIN [Concomitant]
     Active Substance: METFORMIN HYDROCHLORIDE
  3. CALCIUM [Concomitant]
     Active Substance: CALCIUM
  4. ACTONEL [Concomitant]
     Active Substance: RISEDRONATE SODIUM
  5. LEVAQUIN [Concomitant]
     Active Substance: LEVOFLOXACIN
  6. OMEPRAZOLE. [Concomitant]
     Active Substance: OMEPRAZOLE
  7. VITAMIN D [Concomitant]
     Active Substance: CHOLECALCIFEROL
  8. NAPROXEN. [Concomitant]
     Active Substance: NAPROXEN
  9. PREDNISONE. [Concomitant]
     Active Substance: PREDNISONE
  10. ARAVA [Concomitant]
     Active Substance: LEFLUNOMIDE
  11. CRESTOR [Concomitant]
     Active Substance: ROSUVASTATIN CALCIUM

REACTIONS (1)
  - Swelling [Unknown]
